FAERS Safety Report 7511081-0 (Version None)
Quarter: 2011Q2

REPORT INFORMATION
  Report Type: 
  Country: None (occurrence: None)
  Receive Date: 20110519
  Receipt Date: 20110504
  Transmission Date: 20111010
  Serious: Yes (Hospitalization)
  Sender: FDA-Public Use
  Company Number: 2011MA005254

PATIENT
  Age: 76 Year
  Sex: Female

DRUGS (4)
  1. FEVERALL [Suspect]
     Indication: ARTHRALGIA
     Route: 054
  2. THIOCOLCHICOSIDE [Concomitant]
  3. ACETAMINOPHEN [Concomitant]
  4. CELECOXIB [Concomitant]

REACTIONS (9)
  - RENAL IMPAIRMENT [None]
  - OLIGURIA [None]
  - BLOOD ALBUMIN DECREASED [None]
  - TOXIC EPIDERMAL NECROLYSIS [None]
  - SEPSIS [None]
  - ANAEMIA [None]
  - STAPHYLOCOCCUS TEST POSITIVE [None]
  - BLOOD PRESSURE DIASTOLIC DECREASED [None]
  - CENTRAL VENOUS PRESSURE DECREASED [None]
